FAERS Safety Report 10025631 (Version 1)
Quarter: 2014Q1

REPORT INFORMATION
  Report Type: Spontaneous
  Country: US (occurrence: US)
  Receive Date: 20140320
  Receipt Date: 20140320
  Transmission Date: 20141002
  Serious: No
  Sender: FDA-Public Use
  Company Number: US-009507513-1403USA002192

PATIENT
  Sex: Female
  Weight: 85.71 kg

DRUGS (3)
  1. OXYTROL FOR WOMEN [Suspect]
     Indication: PRODUCT USED FOR UNKNOWN INDICATION
     Dosage: 1 DF, Q4D
     Dates: start: 20131001
  2. DIOVAN [Concomitant]
     Indication: HYPERTENSION
     Dosage: 320 MG, UNKNOWN
  3. SIMVASTATIN [Concomitant]
     Indication: BLOOD CHOLESTEROL
     Dosage: 40 MG, UNKNOWN

REACTIONS (2)
  - Incorrect route of drug administration [Unknown]
  - Product adhesion issue [Unknown]
